FAERS Safety Report 16347029 (Version 1)
Quarter: 2019Q2

REPORT INFORMATION
  Report Type: Spontaneous
  Country: US (occurrence: US)
  Receive Date: 20190523
  Receipt Date: 20190523
  Transmission Date: 20190711
  Serious: No
  Sender: FDA-Public Use
  Company Number: US-TARO-2018TAR00303

PATIENT
  Age: 30 Year
  Sex: Female
  Weight: 56.69 kg

DRUGS (1)
  1. CLOTRIMAZOLE VAGINAL CREAM USP 2% 3 DAY [Suspect]
     Active Substance: CLOTRIMAZOLE
     Indication: VULVOVAGINAL MYCOTIC INFECTION
     Dosage: 1 APPLICATORFUL 1X/DAY AT BEDTIME
     Route: 067
     Dates: start: 20180322, end: 20180324

REACTIONS (5)
  - Drug ineffective [Recovered/Resolved]
  - Reaction to excipient [Recovered/Resolved]
  - Gait disturbance [Recovered/Resolved]
  - Vulvovaginal mycotic infection [Recovered/Resolved]
  - Application site pain [Recovered/Resolved]

NARRATIVE: CASE EVENT DATE: 20180322
